FAERS Safety Report 5397060-0 (Version None)
Quarter: 2007Q3

REPORT INFORMATION
  Report Type: 
  Country: None (occurrence: None)
  Receive Date: 20070723
  Receipt Date: 20070712
  Transmission Date: 20080115
  Serious: Yes (Death, Hospitalization)
  Sender: FDA-Public Use
  Company Number: 2007S1000257

PATIENT
  Age: 57 Year
  Sex: Male
  Weight: 92.7 kg

DRUGS (18)
  1. CUBICIN [Suspect]
     Indication: BACTERAEMIA
     Dosage: 6 MG/KG;Q24H;IV
     Route: 042
     Dates: start: 20070228, end: 20070412
  2. CUBICIN [Suspect]
     Indication: ENDOCARDITIS
     Dosage: 6 MG/KG;Q24H;IV
     Route: 042
     Dates: start: 20070228, end: 20070412
  3. CUBICIN [Suspect]
     Indication: THROMBOPHLEBITIS SEPTIC
     Dosage: 6 MG/KG;Q24H;IV
     Route: 042
     Dates: start: 20070228, end: 20070412
  4. VANCOMYCIN [Concomitant]
  5. ZYVOX [Concomitant]
  6. VANCOMYCIN [Concomitant]
  7. XIGRIS [Concomitant]
  8. CEFTRIAXONE [Concomitant]
  9. CEFDINIR [Concomitant]
  10. MINOCYCLINE HCL [Concomitant]
  11. GENTAMICIN [Concomitant]
  12. RIFAMPIN [Concomitant]
  13. CASPOFUNGIN [Concomitant]
  14. REGLAN [Concomitant]
  15. PROPOFOL [Concomitant]
  16. FENTANYL TRANSDERMAL SYSTEM [Concomitant]
  17. PHYTONADIONE [Concomitant]
  18. PANTOPRAZOLE SODIUM [Concomitant]

REACTIONS (26)
  - ALCOHOLIC LIVER DISEASE [None]
  - ANTIMICROBIAL SUSCEPTIBILITY TEST RESISTANT [None]
  - AORTIC VALVE INCOMPETENCE [None]
  - BLOOD ALKALINE PHOSPHATASE INCREASED [None]
  - ECHOCARDIOGRAM ABNORMAL [None]
  - ENDOCARDITIS [None]
  - FIBRIN D DIMER INCREASED [None]
  - HAEMATOCRIT DECREASED [None]
  - HAEMOGLOBIN DECREASED [None]
  - HAEMOPHILUS INFECTION [None]
  - HAEMORRHAGE INTRACRANIAL [None]
  - HYPOTENSION [None]
  - INTERNATIONAL NORMALISED RATIO INCREASED [None]
  - MITRAL VALVE INCOMPETENCE [None]
  - MULTI-ORGAN FAILURE [None]
  - PNEUMONIA HAEMOPHILUS [None]
  - PROTHROMBIN TIME PROLONGED [None]
  - RENAL FAILURE ACUTE [None]
  - RESPIRATORY FAILURE [None]
  - SEPSIS SYNDROME [None]
  - SEPTIC SHOCK [None]
  - SPUTUM CULTURE POSITIVE [None]
  - STAPHYLOCOCCAL BACTERAEMIA [None]
  - THROMBOCYTOPENIA [None]
  - TRICUSPID VALVE INCOMPETENCE [None]
  - WHITE BLOOD CELL COUNT INCREASED [None]
